FAERS Safety Report 16332973 (Version 1)
Quarter: 2019Q2

REPORT INFORMATION
  Report Type: Spontaneous
  Country: US (occurrence: US)
  Receive Date: 20190520
  Receipt Date: 20190520
  Transmission Date: 20190711
  Serious: No
  Sender: FDA-Public Use
  Company Number: US-JNJFOC-20190437650

PATIENT
  Sex: Female

DRUGS (1)
  1. TYLENOL EXTRA STRENGTH [Suspect]
     Active Substance: ACETAMINOPHEN
     Indication: PROCEDURAL PAIN
     Dosage: ONE ON 17TH NIGHT, TWO THE NEXT DAY, AND ONE ON 19APR2019
     Route: 048
     Dates: start: 20190417, end: 20190419

REACTIONS (1)
  - Back pain [Not Recovered/Not Resolved]
